FAERS Safety Report 9243285 (Version 2)
Quarter: 2013Q2

REPORT INFORMATION
  Report Type: Spontaneous
  Country: US (occurrence: US)
  Receive Date: 20130419
  Receipt Date: 20130508
  Transmission Date: 20140414
  Serious: Yes (Death)
  Sender: FDA-Public Use
  Company Number: US-MERCK-1304USA008848

PATIENT
  Age: 41 Year
  Sex: Male

DRUGS (2)
  1. SAPHRIS [Suspect]
     Indication: BIPOLAR DISORDER
     Dosage: UNK
     Dates: start: 20130402
  2. LAMICTAL [Concomitant]

REACTIONS (1)
  - Completed suicide [Fatal]
